FAERS Safety Report 4979343-9 (Version None)
Quarter: 2006Q2

REPORT INFORMATION
  Report Type: 
  Country: None (occurrence: None)
  Receive Date: 20060418
  Receipt Date: 20060405
  Transmission Date: 20061013
  Serious: Yes (Life-Threatening, Hospitalization, Other)
  Sender: FDA-Public Use
  Company Number: FI200604001142

PATIENT
  Age: 75 Year
  Sex: Female

DRUGS (8)
  1. ZYPREXA [Suspect]
     Indication: SCHIZOPHRENIA
     Dosage: SEE IMAGE, ORAL
     Route: 048
     Dates: start: 20051001, end: 20051007
  2. SELEXID               (PIVMECILLINAM HYDROCHLORIDE) [Concomitant]
  3. LANSOPRAZOLE [Concomitant]
  4. NITROSID (ISOSORBIDE DINITRATE) [Concomitant]
  5. RISPERDAL [Concomitant]
  6. TOLTERODINE TARTRATE [Concomitant]
  7. DUPHALAC (LACTULOSE) SUSPENSION [Concomitant]
  8. FURESIS           (FUROSEMIDE) INJECTION [Concomitant]

REACTIONS (10)
  - CARDIAC FAILURE [None]
  - DEPRESSED LEVEL OF CONSCIOUSNESS [None]
  - DYSPNOEA EXACERBATED [None]
  - FATIGUE [None]
  - HYPERCAPNIA [None]
  - PCO2 INCREASED [None]
  - SKIN DISCOLOURATION [None]
  - SOMNOLENCE [None]
  - SPEECH DISORDER [None]
  - URINARY TRACT INFECTION [None]
